FAERS Safety Report 9226258 (Version 1)
Quarter: 2013Q2

REPORT INFORMATION
  Report Type: Spontaneous
  Country: DE (occurrence: DE)
  Receive Date: 20130411
  Receipt Date: 20130411
  Transmission Date: 20140414
  Serious: Yes (Hospitalization)
  Sender: FDA-Public Use
  Company Number: DE-TEVA-395733GER

PATIENT
  Age: 15 Year
  Sex: Male
  Weight: 62 kg

DRUGS (1)
  1. MCP TROPFEN [Suspect]
     Indication: NAUSEA
     Route: 048

REACTIONS (5)
  - Hypokinesia [Recovered/Resolved]
  - Speech disorder [Recovered/Resolved]
  - Vertigo [Recovered/Resolved]
  - Diplopia [Recovered/Resolved]
  - Headache [Recovered/Resolved]
